FAERS Safety Report 10963465 (Version 1)
Quarter: 2015Q1

REPORT INFORMATION
  Report Type: Spontaneous
  Country: US (occurrence: None)
  Receive Date: 20150226
  Receipt Date: 20150226
  Transmission Date: 20150721
  Serious: No
  Sender: FDA-Public Use
  Company Number: TPA2009A02987

PATIENT
  Age: 52 Year
  Sex: Male
  Weight: 158.76 kg

DRUGS (3)
  1. METFORMIN [Concomitant]
     Active Substance: METFORMIN HYDROCHLORIDE
  2. KAPIDEX [Concomitant]
     Active Substance: DEXLANSOPRAZOLE
  3. ULORIC [Suspect]
     Active Substance: FEBUXOSTAT
     Indication: GOUT
     Route: 048
     Dates: start: 20090707

REACTIONS (3)
  - Chromaturia [None]
  - Nephrolithiasis [None]
  - Blood urine present [None]

NARRATIVE: CASE EVENT DATE: 20090921
